FAERS Safety Report 7396825-3 (Version None)
Quarter: 2011Q1

REPORT INFORMATION
  Report Type: 
  Country: None (occurrence: None)
  Receive Date: 20110328
  Receipt Date: 20110331
  Transmission Date: 20110831
  Serious: Yes (Life-Threatening)
  Sender: FDA-Public Use
  Company Number: GER/UKI/11/0017775

PATIENT
  Age: 54 Year
  Sex: Female

DRUGS (6)
  1. LOPERAMIDE [Concomitant]
  2. SPIRIVA [Concomitant]
  3. METHADONE (METHADONE) [Suspect]
     Indication: PAIN
     Dosage: 50 MG, 2 IN 1 D, ORAL
     Route: 048
     Dates: start: 20101120
  4. FLUOXETINE [Concomitant]
  5. FLUCONAZOLE [Suspect]
     Indication: CANDIDIASIS
     Dosage: 50 MG, 1 IN 1 D, ORAL
     Route: 048
     Dates: start: 20110222, end: 20110225
  6. SYMBICORT [Concomitant]

REACTIONS (2)
  - RESPIRATORY DEPRESSION [None]
  - RESPIRATORY FAILURE [None]
